FAERS Safety Report 9045238 (Version 3)
Quarter: 2013Q1

REPORT INFORMATION
  Report Type: Spontaneous
  Country: DE (occurrence: DE)
  Receive Date: 20130131
  Receipt Date: 20130211
  Transmission Date: 20140127
  Serious: Yes (Hospitalization)
  Sender: FDA-Public Use
  Company Number: PHHY2013DE008632

PATIENT
  Age: 83 Year
  Sex: Female
  Weight: 82.2 kg

DRUGS (3)
  1. SANDOSTATIN LAR [Suspect]
     Dosage: UNK UKN, UNK
  2. METFORMIN [Concomitant]
     Indication: DIABETES MELLITUS
     Dosage: 500 MG, DAILY
  3. METFORMIN [Concomitant]
     Dosage: 850 MG, BID

REACTIONS (3)
  - Cardiac disorder [Unknown]
  - Chest pain [Unknown]
  - Blood glucose abnormal [Unknown]
